FAERS Safety Report 11192530 (Version 3)
Quarter: 2015Q3

REPORT INFORMATION
  Report Type: Spontaneous
  Country: US (occurrence: US)
  Receive Date: 20150616
  Receipt Date: 20150820
  Transmission Date: 20151125
  Serious: Yes (Hospitalization, Other)
  Sender: FDA-Public Use
  Company Number: US-PFIZER INC-2015198570

PATIENT
  Sex: Male

DRUGS (1)
  1. ZOLOFT [Suspect]
     Active Substance: SERTRALINE HYDROCHLORIDE
     Indication: DEPRESSION
     Dosage: 50-100 MG DAILY
     Route: 048
     Dates: start: 2012, end: 2015

REACTIONS (5)
  - White blood cell count decreased [Unknown]
  - Thrombocytopenia [Unknown]
  - Lymphoma [Unknown]
  - Neutropenia [Unknown]
  - Leukaemia [Unknown]

NARRATIVE: CASE EVENT DATE: 201502
